FAERS Safety Report 17463451 (Version 1)
Quarter: 2020Q1

REPORT INFORMATION
  Report Type: Report from Study
  Country: DE (occurrence: DE)
  Receive Date: 20200226
  Receipt Date: 20200226
  Transmission Date: 20200409
  Serious: Yes (Hospitalization)
  Sender: FDA-Public Use
  Company Number: DE-JNJFOC-20181126517

PATIENT
  Age: 67 Year
  Sex: Female
  Weight: 67 kg

DRUGS (4)
  1. USTEKINUMAB [Suspect]
     Active Substance: USTEKINUMAB
     Dosage: WEEK 10
     Route: 058
     Dates: start: 20180904
  2. USTEKINUMAB [Suspect]
     Active Substance: USTEKINUMAB
     Indication: CROHN^S DISEASE
     Dosage: WEEK 0
     Route: 058
     Dates: start: 20180424
  3. USTEKINUMAB [Suspect]
     Active Substance: USTEKINUMAB
     Dosage: WEEK 8
     Route: 058
     Dates: start: 20180619
  4. REMERGIL [Concomitant]
     Active Substance: MIRTAZAPINE
     Route: 065

REACTIONS (1)
  - Pneumonia [Recovered/Resolved with Sequelae]

NARRATIVE: CASE EVENT DATE: 20181116
